FAERS Safety Report 4785140-X (Version None)
Quarter: 2005Q3

REPORT INFORMATION
  Report Type: 
  Country: None (occurrence: None)
  Receive Date: 20050928
  Receipt Date: 20050420
  Transmission Date: 20060218
  Serious: Yes (Hospitalization)
  Sender: FDA-Public Use
  Company Number: 2005FR-00289

PATIENT
  Age: 72 Year
  Sex: Female

DRUGS (11)
  1. IBUPROFEN [Suspect]
     Indication: ARTHRITIS
     Dosage: 400 MG TD ORAL
     Route: 048
     Dates: start: 20040501, end: 20050307
  2. ASPIRIN [Suspect]
     Dosage: 75 M G MANE   ORAL
     Route: 048
     Dates: start: 19981001, end: 20050307
  3. ATENOLOL [Concomitant]
  4. ATORVASTATIN [Concomitant]
  5. RANITIDINE [Concomitant]
  6. BENDROFLUAZIDE [Concomitant]
  7. GLYCERYL TRINITRATE [Concomitant]
  8. EUMOVATE [Concomitant]
  9. LACTULOSE SOLUTION [Concomitant]
  10. ACETAMINOPHEN [Concomitant]
  11. ... [Concomitant]

REACTIONS (1)
  - GASTRIC ULCER PERFORATION [None]
